FAERS Safety Report 16171487 (Version 1)
Quarter: 2019Q2

REPORT INFORMATION
  Report Type: Spontaneous
  Country: DE (occurrence: DE)
  Receive Date: 20190408
  Receipt Date: 20190408
  Transmission Date: 20190711
  Serious: Yes (Other)
  Sender: FDA-Public Use
  Company Number: PHHY2019DE075778

PATIENT
  Age: 35 Year
  Sex: Male

DRUGS (4)
  1. OXYGESIC [Interacting]
     Active Substance: OXYCODONE
     Indication: ANKYLOSING SPONDYLITIS
     Dosage: (5 MG OR 10 MG AS NEEDED)
     Route: 065
  2. OXYGESIC [Interacting]
     Active Substance: OXYCODONE
     Dosage: (MORE THAN 40 X 10 MG)
     Route: 065
  3. CETUXIMAB. [Concomitant]
     Active Substance: CETUXIMAB
     Indication: PRODUCT USED FOR UNKNOWN INDICATION
     Dosage: UNK
     Route: 065
  4. DOXEPIN [Suspect]
     Active Substance: DOXEPIN
     Indication: DEPRESSION
     Dosage: UNK
     Route: 065

REACTIONS (10)
  - Respiratory depression [Unknown]
  - Abnormal behaviour [Not Recovered/Not Resolved]
  - Fatigue [Unknown]
  - Drug abuse [Unknown]
  - Unresponsive to stimuli [Not Recovered/Not Resolved]
  - Drug dependence [Unknown]
  - Overdose [Unknown]
  - Drug interaction [Unknown]
  - Product used for unknown indication [Unknown]
  - Somnolence [Not Recovered/Not Resolved]
